FAERS Safety Report 15586732 (Version 1)
Quarter: 2018Q4

REPORT INFORMATION
  Report Type: Spontaneous
  Country: US (occurrence: US)
  Receive Date: 20181101
  Receipt Date: 20181101
  Transmission Date: 20190205
  Serious: No
  Sender: FDA-Public Use
  Company Number: None

PATIENT
  Age: 42 Year
  Sex: Female

DRUGS (1)
  1. ENBREL [Suspect]
     Active Substance: ETANERCEPT
     Route: 058
     Dates: start: 201608

REACTIONS (4)
  - Impaired healing [None]
  - Immune system disorder [None]
  - Papilloma viral infection [None]
  - Smear cervix abnormal [None]

NARRATIVE: CASE EVENT DATE: 20181029
